FAERS Safety Report 7498632-X (Version None)
Quarter: 2011Q2

REPORT INFORMATION
  Report Type: 
  Country: None (occurrence: None)
  Receive Date: 20110524
  Receipt Date: 20110429
  Transmission Date: 20111010
  Serious: Yes (Hospitalization, Other)
  Sender: FDA-Public Use
  Company Number: US-BAYER-201033635NA

PATIENT
  Age: 28 Year
  Sex: Female
  Weight: 55 kg

DRUGS (3)
  1. YAZ [Suspect]
     Indication: CONTRACEPTION
     Dates: start: 20040101, end: 20081215
  2. DROSPIRENONE AND ETHINYL ESTRADIOL [Suspect]
     Indication: CONTRACEPTION
     Dates: start: 20040101, end: 20081215
  3. YASMIN [Suspect]
     Indication: CONTRACEPTION
     Dates: start: 20040101, end: 20081215

REACTIONS (3)
  - ANHEDONIA [None]
  - CEREBROVASCULAR ACCIDENT [None]
  - PAIN [None]
